FAERS Safety Report 25546203 (Version 1)
Quarter: 2025Q3

REPORT INFORMATION
  Report Type: Spontaneous
  Country: US (occurrence: US)
  Receive Date: 20250713
  Receipt Date: 20250713
  Transmission Date: 20251020
  Serious: Yes (Other)
  Sender: AUROBINDO
  Company Number: US-MLMSERVICE-20240604-PI087394-00230-2

PATIENT
  Age: 67 Year
  Sex: Male

DRUGS (7)
  1. MOXIFLOXACIN [Suspect]
     Active Substance: MOXIFLOXACIN
     Indication: Mycobacterial infection
     Route: 065
  2. AMIKACIN [Suspect]
     Active Substance: AMIKACIN
     Indication: Mycobacterial infection
     Route: 065
  3. PREDNISONE [Concomitant]
     Active Substance: PREDNISONE
     Indication: Product used for unknown indication
     Dosage: 10 MILLIGRAM, ONCE A DAY (GRADUALLY TAPERED DOWN TO 10 MG/DAY AFTER THREE MONTHS OF TREATMENT )
     Route: 048
  4. PREDNISONE [Concomitant]
     Active Substance: PREDNISONE
     Dosage: 60 MILLIGRAM, ONCE A DAY
     Route: 048
  5. RIFABUTIN [Concomitant]
     Active Substance: RIFABUTIN
     Indication: Mycobacterial infection
     Route: 065
  6. AZITHROMYCIN [Concomitant]
     Active Substance: AZITHROMYCIN
     Indication: Mycobacterial infection
     Route: 065
  7. CLOFAZIMINE [Concomitant]
     Active Substance: CLOFAZIMINE
     Indication: Mycobacterial infection
     Route: 065

REACTIONS (2)
  - Acute kidney injury [Unknown]
  - Rash [Unknown]
